FAERS Safety Report 4815550-3 (Version None)
Quarter: 2005Q4

REPORT INFORMATION
  Report Type: 
  Country: None (occurrence: None)
  Receive Date: 20051031
  Receipt Date: 20051010
  Transmission Date: 20060501
  Serious: Yes (Hospitalization)
  Sender: FDA-Public Use
  Company Number: US-AMGEN-US153704

PATIENT
  Age: 46 Year
  Sex: Male

DRUGS (5)
  1. SENSIPAR [Suspect]
     Indication: HYPERPARATHYROIDISM SECONDARY
     Route: 048
     Dates: start: 20050912, end: 20050916
  2. RENAGEL [Concomitant]
  3. PROTONIX [Concomitant]
     Dates: start: 20040722
  4. LISINOPRIL [Concomitant]
     Dates: start: 20010328
  5. RENAGEL [Concomitant]
     Dates: start: 20040915

REACTIONS (2)
  - DIZZINESS [None]
  - HIP FRACTURE [None]
